FAERS Safety Report 17527997 (Version 2)
Quarter: 2020Q1

REPORT INFORMATION
  Report Type: Spontaneous
  Country: BE (occurrence: BE)
  Receive Date: 20200311
  Receipt Date: 20200316
  Transmission Date: 20200409
  Serious: Yes (Other)
  Sender: FDA-Public Use
  Company Number: BE-PFIZER INC-2020103811

PATIENT
  Age: 71 Year
  Sex: Male

DRUGS (8)
  1. TOTALIP [Suspect]
     Active Substance: ATORVASTATIN
     Indication: HYPERCHOLESTEROLAEMIA
     Dosage: UNK
  2. MEDROL [Concomitant]
     Active Substance: METHYLPREDNISOLONE
     Dosage: 32 MG, 1X/DAY
  3. STEOVIT D3 [Concomitant]
     Active Substance: CALCIUM CARBONATE\CHOLECALCIFEROL
     Dosage: UNK , 1X/DAY
  4. EMCONCOR [Concomitant]
     Active Substance: BISOPROLOL FUMARATE
     Dosage: 2.5 MG, DAILY
  5. MOVICOL APELSIN [Concomitant]
     Dosage: UNK , 1X/DAY
  6. ASAFLOW [Concomitant]
     Active Substance: ASPIRIN
     Dosage: 80 MG, 1X/DAY
  7. COVERSYL AM [Concomitant]
     Active Substance: AMLODIPINE BESYLATE\PERINDOPRIL ERBUMINE
     Dosage: 5 MG, 2X/DAY
  8. PANTOMED [Concomitant]
     Dosage: 40 MG, 1X/DAY

REACTIONS (5)
  - Dysphagia [Unknown]
  - Speech disorder [Unknown]
  - Impaired quality of life [Unknown]
  - Autoimmune myositis [Unknown]
  - Gait disturbance [Unknown]
